FAERS Safety Report 6187870-4 (Version None)
Quarter: 2009Q2

REPORT INFORMATION
  Report Type: 
  Country: None (occurrence: None)
  Receive Date: 20090513
  Receipt Date: 20090505
  Transmission Date: 20091009
  Serious: Yes (Hospitalization, Other)
  Sender: FDA-Public Use
  Company Number: US-ABBOTT-09P-163-0572292-00

PATIENT
  Sex: Female
  Weight: 56.75 kg

DRUGS (9)
  1. HUMIRA [Suspect]
     Indication: RHEUMATOID ARTHRITIS
     Route: 058
     Dates: start: 20080201, end: 20090203
  2. HUMIRA [Suspect]
     Route: 058
     Dates: start: 20090331
  3. PREDNISONE [Concomitant]
     Indication: RHEUMATOID ARTHRITIS
  4. TRAMADOL [Concomitant]
     Indication: RHEUMATOID ARTHRITIS
  5. LEUCOVORIN CALCIUM [Concomitant]
     Indication: RHEUMATOID ARTHRITIS
     Route: 065
  6. METHOTREXATE [Concomitant]
     Indication: RHEUMATOID ARTHRITIS
  7. ARAVA [Concomitant]
     Indication: RHEUMATOID ARTHRITIS
  8. INDOMETHACIN [Concomitant]
     Indication: RHEUMATOID ARTHRITIS
  9. ALENDRONATE SODIUM [Concomitant]
     Indication: RESORPTION BONE INCREASED

REACTIONS (8)
  - ARTHRALGIA [None]
  - GAIT DISTURBANCE [None]
  - HIP FRACTURE [None]
  - HOT FLUSH [None]
  - JOINT DISLOCATION [None]
  - MENSTRUATION IRREGULAR [None]
  - NIGHT SWEATS [None]
  - RHEUMATOID ARTHRITIS [None]
